FAERS Safety Report 7112098-0 (Version None)
Quarter: 2010Q4

REPORT INFORMATION
  Report Type: 
  Country: None (occurrence: None)
  Receive Date: 20101119
  Receipt Date: 20100212
  Transmission Date: 20110411
  Serious: No
  Sender: FDA-Public Use
  Company Number: A0605617A

PATIENT
  Age: 70 Year
  Sex: Male

DRUGS (7)
  1. AVODART [Suspect]
     Indication: BENIGN PROSTATIC HYPERPLASIA
     Dosage: .5MG PER DAY
     Route: 048
  2. GLAUCOMA EYE DROPS (UNSPECIFIED) [Concomitant]
  3. FLOMAX [Concomitant]
  4. GABAPENTIN [Concomitant]
  5. THYROID HORMONE [Concomitant]
  6. OMEPRAZOLE [Concomitant]
  7. MULTI-VITAMIN [Concomitant]

REACTIONS (3)
  - ABDOMINAL DISCOMFORT [None]
  - BREAST ENLARGEMENT [None]
  - PELVIC PAIN [None]
